FAERS Safety Report 7287147-X (Version None)
Quarter: 2011Q1

REPORT INFORMATION
  Report Type: 
  Country: None (occurrence: None)
  Receive Date: 20110211
  Receipt Date: 20110127
  Transmission Date: 20110831
  Serious: Yes (Other)
  Sender: FDA-Public Use
  Company Number: US-ROCHE-754802

PATIENT
  Sex: Female
  Weight: 60 kg

DRUGS (2)
  1. CELLCEPT [Suspect]
     Route: 048
  2. ZEGERID [Interacting]
     Route: 065

REACTIONS (3)
  - DRUG INTERACTION [None]
  - PULMONARY FUNCTION TEST DECREASED [None]
  - NO THERAPEUTIC RESPONSE [None]
